FAERS Safety Report 6210183-9 (Version None)
Quarter: 2009Q2

REPORT INFORMATION
  Report Type: 
  Country: None (occurrence: None)
  Receive Date: 20090601
  Receipt Date: 20090526
  Transmission Date: 20091009
  Serious: Yes (Hospitalization)
  Sender: FDA-Public Use
  Company Number: FR-EISAI INC.-E2020-04645-SPO-FR

PATIENT
  Sex: Female

DRUGS (13)
  1. ARICEPT [Suspect]
     Route: 048
  2. TRAMADOL HCL [Suspect]
     Indication: PAIN
     Route: 048
     Dates: end: 20090204
  3. TRAMADOL HCL [Suspect]
     Route: 048
     Dates: start: 20090205, end: 20090207
  4. EBIXA [Suspect]
     Route: 048
  5. EQUANIL [Suspect]
     Indication: DRUG USE FOR UNKNOWN INDICATION
     Route: 048
     Dates: end: 20090205
  6. EQUANIL [Suspect]
     Route: 065
     Dates: start: 20090205, end: 20090208
  7. EQUANIL [Suspect]
     Route: 048
     Dates: start: 20090209
  8. NEURONTIN [Suspect]
     Indication: DRUG USE FOR UNKNOWN INDICATION
     Route: 048
     Dates: end: 20090208
  9. NEURONTIN [Suspect]
     Route: 048
     Dates: start: 20090209
  10. KARDEGIC [Concomitant]
     Route: 065
     Dates: end: 20090204
  11. KARDEGIC [Concomitant]
     Route: 065
     Dates: start: 20090205
  12. DAFALGAN [Concomitant]
     Route: 065
  13. CORDARONE [Concomitant]
     Dosage: UNKNOWN
     Route: 046

REACTIONS (5)
  - CONFUSIONAL STATE [None]
  - FALL [None]
  - MENTAL IMPAIRMENT [None]
  - MIOSIS [None]
  - RESPIRATORY DISORDER [None]
